FAERS Safety Report 7168099-X (Version None)
Quarter: 2010Q4

REPORT INFORMATION
  Report Type: 
  Country: None (occurrence: None)
  Receive Date: 20101216
  Receipt Date: 20101210
  Transmission Date: 20110411
  Serious: Yes (Other)
  Sender: FDA-Public Use
  Company Number: IE-PFIZER INC-2010136662

PATIENT
  Age: 25 Year
  Sex: Female
  Weight: 51 kg

DRUGS (1)
  1. CHANTIX [Suspect]
     Indication: SMOKING CESSATION THERAPY
     Dosage: 1 MG, 2X/DAY
     Dates: start: 20100825, end: 20100901

REACTIONS (3)
  - ANTEPARTUM HAEMORRHAGE [None]
  - NAUSEA [None]
  - RESPIRATORY TRACT INFECTION [None]
